FAERS Safety Report 5522450-2 (Version None)
Quarter: 2007Q4

REPORT INFORMATION
  Report Type: 
  Country: None (occurrence: None)
  Receive Date: 20071120
  Receipt Date: 20071108
  Transmission Date: 20080405
  Serious: Yes (Other)
  Sender: FDA-Public Use
  Company Number: PH-SANOFI-SYNTHELABO-A01200711798

PATIENT
  Age: 24 Year
  Sex: Female

DRUGS (6)
  1. TRAMADOL HCL [Concomitant]
     Indication: ANALGESIC THERAPY
     Dosage: UNK
     Route: 065
     Dates: start: 20071001, end: 20071009
  2. MANNITOL [Concomitant]
     Indication: DIURETIC THERAPY
     Dosage: UNK
     Route: 065
     Dates: start: 20071001, end: 20071009
  3. LACTULOSE [Concomitant]
     Indication: LAXATIVE SUPPORTIVE CARE
     Dosage: UNK
     Route: 065
     Dates: start: 20071001, end: 20071009
  4. NIMOPIDINE [Concomitant]
     Dosage: UNK
     Route: 065
     Dates: start: 20071001, end: 20071009
  5. HEPARIN [Concomitant]
     Indication: ANTICOAGULANT THERAPY
     Dosage: UNK
     Route: 065
     Dates: start: 20071001, end: 20071009
  6. PLAVIX [Suspect]
     Indication: THROMBOSIS PROPHYLAXIS
     Dosage: UNK
     Route: 048
     Dates: start: 20071001, end: 20071009

REACTIONS (5)
  - ABORTION SPONTANEOUS [None]
  - DRUG EXPOSURE DURING PREGNANCY [None]
  - PNEUMONIA [None]
  - PREMATURE LABOUR [None]
  - SEPSIS [None]
